FAERS Safety Report 9588452 (Version 1)
Quarter: 2013Q4

REPORT INFORMATION
  Report Type: Spontaneous
  Country: US (occurrence: US)
  Receive Date: 20131003
  Receipt Date: 20131003
  Transmission Date: 20140711
  Serious: No
  Sender: FDA-Public Use
  Company Number: US-AMGEN-USASP2012063884

PATIENT
  Age: 57 Year
  Sex: Male
  Weight: 99.77 kg

DRUGS (4)
  1. ENBREL [Suspect]
     Indication: PSORIASIS
     Dosage: 50 MG/ML, QWK
     Route: 058
  2. ANDROGEL [Concomitant]
     Dosage: 1.62 %, UNK
  3. LISINOPRIL [Concomitant]
     Dosage: 2.5 MG, UNK
  4. ADVAIR HFA [Concomitant]
     Dosage: 45/21

REACTIONS (1)
  - Psoriasis [Unknown]
